FAERS Safety Report 10595338 (Version 1)
Quarter: 2014Q4

REPORT INFORMATION
  Report Type: Spontaneous
  Country: FR (occurrence: FR)
  Receive Date: 20141120
  Receipt Date: 20141120
  Transmission Date: 20150529
  Serious: Yes (Hospitalization, Other)
  Sender: FDA-Public Use
  Company Number: FR-JNJFOC-20141103886

PATIENT
  Age: 82 Year
  Sex: Male

DRUGS (13)
  1. SERESTA [Concomitant]
     Active Substance: OXAZEPAM
     Route: 065
  2. EPINITRIL [Concomitant]
     Active Substance: NITROGLYCERIN
     Route: 065
  3. ZYTIGA [Suspect]
     Active Substance: ABIRATERONE ACETATE
     Indication: PROSTATE CANCER
     Route: 048
     Dates: end: 20141017
  4. EPREX [Concomitant]
     Active Substance: ERYTHROPOIETIN
     Route: 065
  5. LASILIX [Concomitant]
     Active Substance: FUROSEMIDE
     Route: 065
  6. BISOCE [Concomitant]
     Active Substance: BISOPROLOL
     Route: 065
  7. DOLIPRANE [Concomitant]
     Active Substance: ACETAMINOPHEN
     Route: 065
  8. DUPHALAC [Concomitant]
     Active Substance: LACTULOSE
     Route: 065
  9. DUROGESIC [Concomitant]
     Active Substance: FENTANYL
     Route: 065
  10. KARDEGIC [Concomitant]
     Active Substance: ASPIRIN LYSINE
     Route: 065
  11. SOLUPRED [Concomitant]
     Active Substance: PREDNISOLONE
     Route: 065
  12. ACTISKENAN [Concomitant]
     Active Substance: MORPHINE SULFATE
     Route: 065
  13. INEXIUM [Concomitant]
     Active Substance: ESOMEPRAZOLE
     Route: 065

REACTIONS (3)
  - Inappropriate schedule of drug administration [Unknown]
  - Hypokalaemia [Recovering/Resolving]
  - Hospitalisation [Unknown]

NARRATIVE: CASE EVENT DATE: 20141017
